FAERS Safety Report 21655857 (Version 2)
Quarter: 2022Q4

REPORT INFORMATION
  Report Type: Spontaneous
  Country: US (occurrence: US)
  Receive Date: 20221129
  Receipt Date: 20221209
  Transmission Date: 20230113
  Serious: No
  Sender: FDA-Public Use
  Company Number: US-CYCLE PHARMACEUTICALS LTD-2022-CYC-000038

PATIENT

DRUGS (2)
  1. NITYR [Suspect]
     Active Substance: NITISINONE
     Indication: Tyrosinaemia
     Dosage: 4 MG, BID
     Route: 048
  2. ORFADIN [Concomitant]
     Active Substance: NITISINONE
     Indication: Product used for unknown indication
     Dosage: 4 MG/ML, UNK
     Route: 048

REACTIONS (2)
  - Therapeutic response changed [Unknown]
  - Product use issue [Unknown]
